FAERS Safety Report 4409738-3 (Version None)
Quarter: 2004Q3

REPORT INFORMATION
  Report Type: 
  Country: None (occurrence: None)
  Receive Date: 20040728
  Receipt Date: 20040722
  Transmission Date: 20050211
  Serious: Yes (Life-Threatening, Hospitalization)
  Sender: FDA-Public Use
  Company Number: 200417284GDDC

PATIENT
  Age: 71 Year
  Sex: Female
  Weight: 75 kg

DRUGS (9)
  1. ENOXAPARIN [Suspect]
     Indication: ANGINA UNSTABLE
     Route: 058
     Dates: start: 20040619, end: 20040625
  2. CLOPIDOGREL [Suspect]
     Indication: ANGINA UNSTABLE
     Route: 048
     Dates: start: 20040620, end: 20040625
  3. ASPIRIN [Suspect]
     Indication: ANGINA PECTORIS
     Route: 048
     Dates: start: 20040620, end: 20040625
  4. SOTALOL HCL [Concomitant]
     Indication: PALPITATIONS
     Route: 048
     Dates: start: 20040401
  5. VALSARTAN [Concomitant]
     Indication: HYPERTENSION
     Route: 048
  6. GAVISCON [Concomitant]
     Indication: DYSPEPSIA
     Route: 048
     Dates: start: 20040621, end: 20040624
  7. SIMVASTATIN [Concomitant]
     Indication: BLOOD CHOLESTEROL INCREASED
     Route: 048
     Dates: start: 20040621, end: 20040624
  8. SIMVASTATIN [Concomitant]
     Indication: MYOCARDIAL ISCHAEMIA
     Route: 048
     Dates: start: 20040621, end: 20040624
  9. LISINOPRIL [Concomitant]
     Indication: HYPERTENSION
     Dates: start: 20040201, end: 20040501

REACTIONS (9)
  - DIZZINESS [None]
  - LIFE SUPPORT [None]
  - MEDICATION ERROR [None]
  - PALLOR [None]
  - POST PROCEDURAL HAEMORRHAGE [None]
  - RENAL IMPAIRMENT [None]
  - RETROPERITONEAL HAEMORRHAGE [None]
  - TROPONIN INCREASED [None]
  - VOMITING [None]
